FAERS Safety Report 17133194 (Version 1)
Quarter: 2019Q4

REPORT INFORMATION
  Report Type: Spontaneous
  Country: US (occurrence: US)
  Receive Date: 20191209
  Receipt Date: 20191209
  Transmission Date: 20200122
  Serious: No
  Sender: FDA-Public Use
  Company Number: None

PATIENT
  Age: 46 Year
  Sex: Female

DRUGS (2)
  1. MACROBID [Suspect]
     Active Substance: NITROFURANTOIN\NITROFURANTOIN MONOHYDRATE
     Indication: HAEMATURIA
     Dosage: ?          OTHER FREQUENCY:X 1 DOSE;?
     Route: 048
     Dates: start: 20191207
  2. MACROBID [Suspect]
     Active Substance: NITROFURANTOIN\NITROFURANTOIN MONOHYDRATE
     Indication: DYSURIA
     Dosage: ?          OTHER FREQUENCY:X 1 DOSE;?
     Route: 048
     Dates: start: 20191207

REACTIONS (4)
  - Nausea [None]
  - Pain [None]
  - Headache [None]
  - Vomiting [None]

NARRATIVE: CASE EVENT DATE: 20191208
